FAERS Safety Report 7377307-1 (Version None)
Quarter: 2011Q1

REPORT INFORMATION
  Report Type: 
  Country: None (occurrence: None)
  Receive Date: 20110328
  Receipt Date: 20110318
  Transmission Date: 20110831
  Serious: Yes (Hospitalization, Other)
  Sender: FDA-Public Use
  Company Number: US-JNJFOC-20110308190

PATIENT
  Sex: Female

DRUGS (6)
  1. DILANTIN [Suspect]
     Indication: CONVULSION PROPHYLAXIS
     Route: 065
  2. LISINOPRIL [Concomitant]
     Indication: PRODUCT USED FOR UNKNOWN INDICATION
     Route: 065
  3. CLONIDINE [Concomitant]
     Indication: PRODUCT USED FOR UNKNOWN INDICATION
     Route: 065
  4. LEVAQUIN [Suspect]
     Route: 042
  5. LEVAQUIN [Suspect]
     Indication: URINARY TRACT INFECTION
     Route: 048
  6. DILANTIN [Suspect]
     Indication: CEREBRAL HAEMORRHAGE
     Route: 065

REACTIONS (6)
  - HEARING IMPAIRED [None]
  - STEVENS-JOHNSON SYNDROME [None]
  - COMA [None]
  - BLINDNESS [None]
  - TOXIC EPIDERMAL NECROLYSIS [None]
  - DEPRESSION [None]
